FAERS Safety Report 5823521-3 (Version None)
Quarter: 2008Q3

REPORT INFORMATION
  Report Type: 
  Country: None (occurrence: None)
  Receive Date: 20080725
  Receipt Date: 20080714
  Transmission Date: 20090109
  Serious: Yes (Hospitalization, Other)
  Sender: FDA-Public Use
  Company Number: NL-GILEAD-2008-0017252

PATIENT
  Sex: Female
  Weight: 82 kg

DRUGS (8)
  1. TENOFOVIR DISOPROXIL FUMARATE [Suspect]
     Route: 048
     Dates: start: 20050223, end: 20071201
  2. MARAVIROC [Suspect]
     Indication: HIV INFECTION
     Dates: start: 20071201
  3. RALTEGRAVIR [Suspect]
     Indication: HIV INFECTION
     Route: 048
     Dates: start: 20071201
  4. COTRIM [Concomitant]
     Route: 048
  5. KALETRA [Concomitant]
     Route: 048
     Dates: start: 20050223, end: 20071201
  6. LAMIVUDINE [Concomitant]
     Route: 048
     Dates: start: 19961001, end: 20071201
  7. RITONAVIR [Concomitant]
     Route: 048
     Dates: start: 20071201
  8. PREZISTA [Concomitant]
     Route: 048
     Dates: start: 20071201

REACTIONS (8)
  - ABDOMINAL PAIN [None]
  - BLOOD AMYLASE INCREASED [None]
  - BLOOD CREATINE PHOSPHOKINASE INCREASED [None]
  - DIARRHOEA [None]
  - DRUG TOXICITY [None]
  - HEPATIC ENZYME INCREASED [None]
  - LIPODYSTROPHY ACQUIRED [None]
  - URINARY TRACT INFECTION [None]
